FAERS Safety Report 25634663 (Version 1)
Quarter: 2025Q3

REPORT INFORMATION
  Report Type: Spontaneous
  Country: US (occurrence: US)
  Receive Date: 20250801
  Receipt Date: 20250801
  Transmission Date: 20251021
  Serious: No
  Sender: ELI LILLY AND COMPANY
  Company Number: US-ELI_LILLY_AND_COMPANY-US202507019832

PATIENT
  Age: 59 Year
  Sex: Female
  Weight: 83.18 kg

DRUGS (3)
  1. TALTZ [Suspect]
     Active Substance: IXEKIZUMAB
     Indication: Product used for unknown indication
     Route: 065
  2. DUPIXENT [Suspect]
     Active Substance: DUPILUMAB
     Indication: Illness
     Route: 058
  3. DUPIXENT [Suspect]
     Active Substance: DUPILUMAB
     Route: 058

REACTIONS (4)
  - Heart rate increased [Not Recovered/Not Resolved]
  - Epicondylitis [Not Recovered/Not Resolved]
  - Skin disorder [Not Recovered/Not Resolved]
  - Malaise [Unknown]
